FAERS Safety Report 7644071-8 (Version None)
Quarter: 2011Q3

REPORT INFORMATION
  Report Type: 
  Country: None (occurrence: None)
  Receive Date: 20110729
  Receipt Date: 20110719
  Transmission Date: 20111222
  Serious: Yes (Hospitalization)
  Sender: FDA-Public Use
  Company Number: CA-JNJFOC-20110609057

PATIENT
  Sex: Female
  Weight: 105 kg

DRUGS (14)
  1. REMICADE [Suspect]
     Indication: COLITIS ULCERATIVE
     Route: 042
  2. NPH INSULIN [Concomitant]
  3. REMICADE [Suspect]
     Route: 042
     Dates: start: 20110422
  4. PAROXETINE HCL [Concomitant]
  5. SYNTHROID [Concomitant]
  6. AZATHIOPRINE [Concomitant]
  7. TYLENOL W/ CODEINE NO. 3 [Concomitant]
  8. ANTIBIOTIC CREAM [Concomitant]
  9. NOVORAPID INSULIN [Concomitant]
  10. PREDNISONE [Concomitant]
  11. MESALAMINE [Concomitant]
  12. DILTIAZEM [Concomitant]
  13. REMICADE [Suspect]
     Route: 042
     Dates: start: 20100801
  14. LESCOL XL [Concomitant]

REACTIONS (3)
  - DEHYDRATION [None]
  - DIARRHOEA [None]
  - NAUSEA [None]
